FAERS Safety Report 11631427 (Version 2)
Quarter: 2015Q4

REPORT INFORMATION
  Report Type: Report from Study
  Country: CZ (occurrence: CZ)
  Receive Date: 20151015
  Receipt Date: 20151021
  Transmission Date: 20160304
  Serious: Yes (Other)
  Sender: FDA-Public Use
  Company Number: CZ-AMGEN-CZECT2015106575

PATIENT
  Age: 38 Year
  Sex: Female
  Weight: 102 kg

DRUGS (13)
  1. VALACICLOVIRUM [Concomitant]
     Active Substance: VALACYCLOVIR HYDROCHLORIDE
     Dosage: 500 MG, UNK
     Route: 048
     Dates: start: 20140911
  2. CALCITRIOLUM [Concomitant]
     Dosage: 0.25 MCG, UNK
     Route: 048
     Dates: start: 20131025
  3. OMEPRAZOLUM [Concomitant]
     Dosage: 20 MG, UNK
     Route: 048
     Dates: start: 20150202
  4. CITALOPRAMUM [Concomitant]
     Dosage: 20 MG, UNK
     Route: 048
     Dates: start: 20140911
  5. DEXAMETHASONE. [Concomitant]
     Active Substance: DEXAMETHASONE
     Dosage: 20 MG, UNK
     Dates: start: 20150728
  6. CALCII CARBONICI [Concomitant]
     Dosage: 1 G, UNK
     Route: 048
     Dates: start: 20141022
  7. KIOVIG [Concomitant]
     Active Substance: HUMAN IMMUNOGLOBULIN G
     Dosage: 20 G, UNK
     Route: 042
     Dates: start: 20150813, end: 20150917
  8. PARACETAMOL [Concomitant]
     Active Substance: ACETAMINOPHEN
     Dosage: 500 MG, UNK
     Route: 048
     Dates: start: 20150728, end: 20150728
  9. BLINATUMOMAB [Suspect]
     Active Substance: BLINATUMOMAB
     Indication: ACUTE LYMPHOCYTIC LEUKAEMIA
     Dosage: 28 MUG, UNK
     Route: 041
     Dates: start: 20140910, end: 20150728
  10. BISEPTOL [Concomitant]
     Active Substance: SULFAMETHOXAZOLE\TRIMETHOPRIM
     Dosage: 480 MG, UNK
     Route: 048
     Dates: start: 20140910
  11. DEGAN [Concomitant]
     Active Substance: METOCLOPRAMIDE HYDROCHLORIDE
     Dosage: 10 MG, UNK
     Route: 048
     Dates: start: 20150520
  12. BELOGENT [Concomitant]
     Dosage: UNK
     Route: 061
     Dates: start: 20141024
  13. MAGNESII LACTICI [Concomitant]
     Active Substance: MAGNESIUM LACTATE
     Dosage: 1.5 G, UNK
     Route: 048
     Dates: start: 20140918

REACTIONS (1)
  - Leukaemia recurrent [Unknown]

NARRATIVE: CASE EVENT DATE: 20151006
